FAERS Safety Report 25565201 (Version 1)
Quarter: 2025Q3

REPORT INFORMATION
  Report Type: Spontaneous
  Country: US (occurrence: None)
  Receive Date: 20250716
  Receipt Date: 20250716
  Transmission Date: 20251020
  Serious: Yes (Hospitalization)
  Sender: FDA-CTU
  Company Number: None

PATIENT
  Age: 81 Year
  Sex: Female
  Weight: 45.8 kg

DRUGS (2)
  1. FLUOROURACIL [Suspect]
     Active Substance: FLUOROURACIL
     Dates: end: 20231212
  2. MITOMYCIN C [Suspect]
     Active Substance: MITOMYCIN
     Dates: end: 20231212

REACTIONS (9)
  - Asthenia [None]
  - Diarrhoea [None]
  - Transfusion [None]
  - Pancytopenia [None]
  - Platelet transfusion [None]
  - Liver disorder [None]
  - Chemotherapy [None]
  - Vulvovaginal discomfort [None]
  - Adverse drug reaction [None]

NARRATIVE: CASE EVENT DATE: 20250524
